FAERS Safety Report 9151030 (Version 1)
Quarter: 2013Q1

REPORT INFORMATION
  Report Type: Spontaneous
  Country: US (occurrence: US)
  Receive Date: 20130308
  Receipt Date: 20130308
  Transmission Date: 20140127
  Serious: No
  Sender: FDA-Public Use
  Company Number: US-GLAXOSMITHKLINE-A0968694A

PATIENT
  Sex: 0

DRUGS (4)
  1. NICOTINE GUM [Suspect]
     Indication: SMOKING CESSATION THERAPY
     Route: 002
  2. NICOTINE PATCH [Suspect]
     Indication: SMOKING CESSATION THERAPY
     Route: 062
  3. WELLBUTRIN [Suspect]
     Indication: SMOKING CESSATION THERAPY
     Route: 048
  4. HERBAL NOS [Suspect]
     Indication: SMOKING CESSATION THERAPY
     Route: 055

REACTIONS (2)
  - Depression [Unknown]
  - Drug ineffective [Unknown]
